FAERS Safety Report 7454268-8 (Version None)
Quarter: 2011Q2

REPORT INFORMATION
  Report Type: 
  Country: None (occurrence: None)
  Receive Date: 20110503
  Receipt Date: 20110422
  Transmission Date: 20111010
  Serious: Yes (Other)
  Sender: FDA-Public Use
  Company Number: US-US-EMD SERONO, INC.-7055556

PATIENT
  Sex: Female

DRUGS (1)
  1. REBIF [Suspect]
     Indication: MULTIPLE SCLEROSIS
     Route: 058
     Dates: start: 20100822

REACTIONS (4)
  - MUSCULOSKELETAL DISORDER [None]
  - FALL [None]
  - GAIT DISTURBANCE [None]
  - WRIST FRACTURE [None]
